FAERS Safety Report 9394514 (Version 2)
Quarter: 2013Q3

REPORT INFORMATION
  Report Type: Report from Study
  Country: US (occurrence: US)
  Receive Date: 20130711
  Receipt Date: 20130721
  Transmission Date: 20140515
  Serious: No
  Sender: FDA-Public Use
  Company Number: PHEH2013US014525

PATIENT
  Sex: Male

DRUGS (1)
  1. TOBI [Suspect]
     Indication: PNEUMONIA PSEUDOMONAL
     Dosage: 300 MG, BID
     Dates: start: 201303

REACTIONS (1)
  - Drug administered to patient of inappropriate age [Unknown]
